FAERS Safety Report 4286407-4 (Version None)
Quarter: 2004Q1

REPORT INFORMATION
  Report Type: 
  Country: None (occurrence: None)
  Receive Date: 20040126
  Receipt Date: 20030519
  Transmission Date: 20041129
  Serious: No
  Sender: FDA-Public Use
  Company Number: 03P-163-0219395-00

PATIENT
  Age: 28 Year
  Sex: Female
  Weight: 56.6996 kg

DRUGS (1)
  1. HYTRIN [Suspect]
     Dosage: 5 MG, 1 IN 1 D, PER ORAL
     Route: 048
     Dates: start: 20030513, end: 20030514

REACTIONS (8)
  - DIZZINESS [None]
  - DYSPNOEA [None]
  - FATIGUE [None]
  - NAUSEA [None]
  - OVERDOSE [None]
  - PARAESTHESIA [None]
  - SYNCOPE [None]
  - TREMOR [None]
